FAERS Safety Report 8817410 (Version 2)
Quarter: 2012Q4

REPORT INFORMATION
  Report Type: 
  Country: GB (occurrence: GB)
  Receive Date: 20121004
  Receipt Date: 20121226
  Transmission Date: 20130627
  Serious: Yes (Other)
  Sender: FDA-Public Use
  Company Number: GB-B.I. PHARMACEUTICALS,INC./RIDGEFIELD-2012-UK-01253UK

PATIENT
  Age: 75 Year
  Sex: Male
  Weight: 94 kg

DRUGS (7)
  1. DABIGATRAN [Suspect]
     Indication: PROPHYLAXIS
     Dosage: 300 mg
     Dates: start: 20120718, end: 20120728
  2. ALLOPURINOL [Concomitant]
     Dosage: 300 mg
  3. BECLOMETASONE [Concomitant]
  4. BUSCOPAN [Concomitant]
  5. CANDESARTAN [Concomitant]
     Dosage: 8 mg
  6. EZETIMIBE [Concomitant]
     Dosage: 10 mg
  7. RANITIDINE [Concomitant]
     Dosage: 150 mg

REACTIONS (3)
  - Dyspnoea [Recovered/Resolved]
  - Chest discomfort [Recovered/Resolved]
  - Dysphagia [Recovered/Resolved]
